FAERS Safety Report 14036064 (Version 2)
Quarter: 2018Q4

REPORT INFORMATION
  Report Type: Spontaneous
  Country: US (occurrence: US)
  Receive Date: 20171003
  Receipt Date: 20181010
  Transmission Date: 20190204
  Serious: No
  Sender: FDA-Public Use
  Company Number: US-ROCHE-1907335

PATIENT
  Sex: Female

DRUGS (11)
  1. ZELBORAF [Suspect]
     Active Substance: VEMURAFENIB
     Indication: MALIGNANT MELANOMA
     Dosage: 2 TABLETS BY MOUTH TWICE A DAY
     Route: 048
     Dates: start: 20140504
  2. CELEBREX [Concomitant]
     Active Substance: CELECOXIB
     Route: 048
  3. AUGMENTIN [Concomitant]
     Active Substance: AMOXICILLIN\CLAVULANATE POTASSIUM
  4. ALPRAZOLAM. [Concomitant]
     Active Substance: ALPRAZOLAM
  5. FLONASE [Concomitant]
     Active Substance: FLUTICASONE PROPIONATE
  6. MACROBID (UNITED STATES) [Concomitant]
  7. PREDNISONE. [Concomitant]
     Active Substance: PREDNISONE
  8. ZELBORAF [Suspect]
     Active Substance: VEMURAFENIB
     Dosage: 2 TABLETS BY MOUTH TWICE A DAY
     Route: 048
     Dates: start: 201408
  9. BIOTIN [Concomitant]
     Active Substance: BIOTIN
  10. CIPRO [Concomitant]
     Active Substance: CIPROFLOXACIN HYDROCHLORIDE
  11. DICYCLOMINE HCL [Concomitant]
     Active Substance: DICYCLOMINE HYDROCHLORIDE

REACTIONS (4)
  - Arthralgia [Not Recovered/Not Resolved]
  - Ageusia [Not Recovered/Not Resolved]
  - Urinary tract infection [Not Recovered/Not Resolved]
  - Alopecia [Not Recovered/Not Resolved]
